FAERS Safety Report 7509547-2 (Version None)
Quarter: 2011Q2

REPORT INFORMATION
  Report Type: 
  Country: None (occurrence: None)
  Receive Date: 20110527
  Receipt Date: 20110526
  Transmission Date: 20111010
  Serious: Yes (Hospitalization)
  Sender: FDA-Public Use
  Company Number: JP-ABBOTT-11P-087-0713204-00

PATIENT
  Sex: Male

DRUGS (10)
  1. MESALAMINE [Concomitant]
     Indication: CROHN'S DISEASE
     Route: 048
     Dates: start: 20100116
  2. PREDNISOLONE [Concomitant]
     Indication: CROHN'S DISEASE
     Route: 048
     Dates: start: 20101101, end: 20110201
  3. CODEINE PHOSPHATE HYDRATE [Concomitant]
  4. LANSOPRAZOLE [Concomitant]
     Indication: GASTROINTESTINAL MUCOSAL DISORDER
     Route: 048
     Dates: start: 20091122
  5. CODEINE PHOSPHATE HYDRATE [Concomitant]
     Indication: PROPHYLAXIS AGAINST DIARRHOEA
     Route: 048
  6. PREDNISOLONE [Concomitant]
     Route: 048
     Dates: start: 20110201
  7. AZATHIOPRINE [Concomitant]
     Indication: CROHN'S DISEASE
     Route: 048
     Dates: start: 20100118
  8. HUMIRA [Suspect]
     Indication: CROHN'S DISEASE
     Route: 058
     Dates: start: 20101102, end: 20110228
  9. LANSOPRAZOLE [Concomitant]
     Indication: GASTRIC DISORDER
  10. LANSOPRAZOLE [Concomitant]
     Indication: PROPHYLAXIS

REACTIONS (2)
  - HAEMOPTYSIS [None]
  - PYREXIA [None]
